FAERS Safety Report 10111124 (Version 2)
Quarter: 2014Q4

REPORT INFORMATION
  Report Type: Other
  Country: US (occurrence: US)
  Receive Date: 20140425
  Receipt Date: 20141213
  Transmission Date: 20150528
  Serious: Yes (Hospitalization, Other)
  Sender: FDA-Public Use
  Company Number: US-GSKPPD-2014GSK010161

PATIENT
  Age: 57 Year
  Sex: Male

DRUGS (8)
  1. COZAAR [Concomitant]
     Active Substance: LOSARTAN POTASSIUM
  2. ISOSORBIDE MONONITRATE. [Concomitant]
     Active Substance: ISOSORBIDE MONONITRATE
     Route: 048
  3. COUMADIN [Concomitant]
     Active Substance: WARFARIN SODIUM
     Route: 048
  4. AVANDIA [Suspect]
     Active Substance: ROSIGLITAZONE MALEATE
     Indication: DIABETES MELLITUS
     Dosage: DATES OF AVANDIA USE COULD NOT BE CONFIRMED IN RECORDS REVIEWED
     Route: 048
  5. K-DUR [Concomitant]
     Active Substance: POTASSIUM CHLORIDE
     Route: 048
  6. TEVETEN [Concomitant]
     Active Substance: EPROSARTAN MESYLATE
     Route: 048
  7. ASPIRIN. [Concomitant]
     Active Substance: ASPIRIN
     Route: 048
  8. LASIX [Concomitant]
     Active Substance: FUROSEMIDE
     Route: 048

REACTIONS (2)
  - Cardiac failure congestive [Recovered/Resolved]
  - Coronary artery disease [Recovered/Resolved]

NARRATIVE: CASE EVENT DATE: 20040503
